FAERS Safety Report 4334185-2 (Version None)
Quarter: 2004Q2

REPORT INFORMATION
  Report Type: 
  Country: None (occurrence: None)
  Receive Date: 20040402
  Receipt Date: 20040325
  Transmission Date: 20050107
  Serious: Yes (Hospitalization)
  Sender: FDA-Public Use
  Company Number: K200400319

PATIENT
  Age: 88 Year
  Sex: Female

DRUGS (5)
  1. ALTACE [Suspect]
     Dosage: ORAL
     Route: 048
     Dates: end: 20040202
  2. TRAMADOL HCL [Suspect]
     Indication: PAIN
     Dosage: 2U, ORAL
     Route: 048
     Dates: start: 20040122, end: 20040202
  3. ARICEPT [Suspect]
     Dosage: 10 MG , ORAL
     Route: 048
     Dates: end: 20040202
  4. RISPERDAL [Suspect]
     Dosage: 1 MG, QD, ORAL
     Route: 048
     Dates: end: 20040202
  5. LEVOTHYROXINE SODIUM [Concomitant]

REACTIONS (7)
  - AGGRESSION [None]
  - CONVULSION [None]
  - DECREASED ACTIVITY [None]
  - DISTURBANCE IN ATTENTION [None]
  - ELECTROENCEPHALOGRAM ABNORMAL [None]
  - PARAPARESIS [None]
  - TREMOR [None]
